FAERS Safety Report 19364559 (Version 1)
Quarter: 2021Q2

REPORT INFORMATION
  Report Type: Spontaneous
  Country: US (occurrence: US)
  Receive Date: 20210602
  Receipt Date: 20210602
  Transmission Date: 20210717
  Serious: Yes (Other)
  Sender: FDA-Public Use
  Company Number: None

PATIENT
  Age: 54 Year
  Sex: Male
  Weight: 85.5 kg

DRUGS (1)
  1. DEPO?TESTOSTERONE [Suspect]
     Active Substance: TESTOSTERONE CYPIONATE
     Indication: BLOOD TESTOSTERONE DECREASED
     Dosage: ?          QUANTITY:1 INJECTION(S);OTHER FREQUENCY:ONCE PER WEEK;?
     Route: 030
     Dates: start: 20210421

REACTIONS (8)
  - Fatigue [None]
  - Memory impairment [None]
  - Pain [None]
  - Burning sensation [None]
  - Skin irritation [None]
  - Muscular weakness [None]
  - Dizziness [None]
  - Feeling abnormal [None]
